FAERS Safety Report 5554526-8 (Version None)
Quarter: 2007Q4

REPORT INFORMATION
  Report Type: 
  Country: None (occurrence: None)
  Receive Date: 20071213
  Receipt Date: 20071130
  Transmission Date: 20080405
  Serious: Yes (Hospitalization)
  Sender: FDA-Public Use
  Company Number: CH-GENENTECH-251778

PATIENT
  Sex: Female

DRUGS (6)
  1. BEVACIZUMAB [Suspect]
     Indication: BREAST CANCER
     Dosage: 420 MG, QD
     Route: 042
     Dates: start: 20070625, end: 20071105
  2. BEVACIZUMAB [Suspect]
     Dosage: 430 MG, QD
     Route: 042
  3. DOXORUBICIN HCL [Suspect]
     Indication: BREAST CANCER
     Dosage: 28 MG, QD
     Route: 042
     Dates: start: 20060625, end: 20070730
  4. DOXORUBICIN HCL [Suspect]
     Dosage: 22 MG, QD
     Route: 042
     Dates: start: 20070730, end: 20070919
  5. DOXORUBICIN HCL [Suspect]
     Dosage: 28 MG, QD
     Route: 043
     Dates: start: 20070919
  6. DOXORUBICIN HCL [Suspect]
     Dosage: 22 MG, QD
     Route: 042
     Dates: start: 20071008, end: 20071021

REACTIONS (5)
  - EPISTAXIS [None]
  - FATIGUE [None]
  - HYPERTENSION [None]
  - PALMAR-PLANTAR ERYTHRODYSAESTHESIA SYNDROME [None]
  - WOUND COMPLICATION [None]
